FAERS Safety Report 8287755-3 (Version None)
Quarter: 2012Q2

REPORT INFORMATION
  Report Type: 
  Country: None (occurrence: None)
  Receive Date: 20120416
  Receipt Date: 20120209
  Transmission Date: 20120825
  Serious: Yes (Hospitalization)
  Sender: FDA-Public Use
  Company Number: E2020-10322-SPO-US

PATIENT
  Age: 56 Year
  Sex: Female

DRUGS (1)
  1. ARICEPT [Suspect]
     Indication: DEMENTIA
     Dosage: 23 MG, 1 IN 1 D, ORAL
     Route: 048
     Dates: start: 20120202

REACTIONS (1)
  - PANCREATITIS [None]
